FAERS Safety Report 7597463-X (Version None)
Quarter: 2011Q3

REPORT INFORMATION
  Report Type: 
  Country: None (occurrence: None)
  Receive Date: 20110708
  Receipt Date: 20110628
  Transmission Date: 20111222
  Serious: Yes (Hospitalization, Other)
  Sender: FDA-Public Use
  Company Number: PHEH2007US14099

PATIENT
  Sex: Male

DRUGS (69)
  1. OXYCONTIN [Concomitant]
  2. CYCLOPHOSPHAMIDE [Concomitant]
  3. CYTOXAN [Concomitant]
  4. MYCELEX [Concomitant]
  5. FOLIC ACID [Concomitant]
  6. PENICLINE [Concomitant]
     Dosage: 500 MG, BID
  7. HYDROCODONE BITARTRATE [Concomitant]
  8. ZITHROMAX [Suspect]
  9. ZANTAC [Concomitant]
  10. VINCRISTINE [Concomitant]
  11. LIPITOR [Concomitant]
  12. MAGNESIUM OXIDE [Concomitant]
  13. ZOFRAN [Concomitant]
     Dosage: 4 MG
     Route: 042
  14. MEPERIDINE HCL [Concomitant]
  15. MULTIVITAMIN ^LAPPE^ [Concomitant]
     Dosage: 1 DF, QD
     Route: 048
  16. TRAZODONE HCL [Concomitant]
  17. ZOCOR [Concomitant]
  18. LORTAB [Concomitant]
  19. NEURONTIN [Concomitant]
  20. CEFEPIME [Concomitant]
  21. PENICILLIN ^GRUNENTHAL^ [Concomitant]
  22. MORPHINE [Concomitant]
     Route: 042
  23. COLACE [Concomitant]
     Dosage: 100 MG, BID
  24. DEXAMETHASONE [Concomitant]
  25. ALLOPURINOL [Concomitant]
  26. COUMADIN [Concomitant]
     Indication: THROMBOSIS PROPHYLAXIS
  27. NEUPOGEN [Concomitant]
  28. MELPHALAN HYDROCHLORIDE [Concomitant]
  29. AUGMENTIN '125' [Concomitant]
  30. CALCIUM WITH VITAMIN D [Concomitant]
  31. ASPIRIN [Concomitant]
     Route: 048
  32. VITAMIN E [Concomitant]
     Dosage: 400 IU DAILY
     Route: 048
  33. ATROPIN [Concomitant]
     Dosage: 0.5 MG, PRN
     Route: 042
  34. COZAAR [Concomitant]
  35. AREDIA [Suspect]
     Dosage: 90 MG, QMO
  36. DIFLUCAN [Concomitant]
  37. PREDNISONE [Concomitant]
  38. PENICILLIN NOS [Concomitant]
  39. CEPHALEXIN [Concomitant]
  40. PROZAC [Concomitant]
  41. KLONOPIN [Concomitant]
  42. DECADRON [Concomitant]
  43. PHENERGAN [Concomitant]
     Dosage: 12.5 MG, PRN
     Route: 042
  44. LABETALOL HCL [Concomitant]
     Dosage: 5 MG
     Route: 042
  45. GENTAMICIN [Concomitant]
  46. THALIDOMIDE [Suspect]
     Dosage: UNK
  47. FAMVIR                                  /NET/ [Concomitant]
  48. BEXTRA [Concomitant]
  49. RESTORIL [Concomitant]
  50. CELEBREX [Concomitant]
  51. VITAMIN B-12 [Concomitant]
     Dosage: 800 MCG DAILY
     Route: 048
  52. FORTAZ [Concomitant]
  53. UNASYN [Concomitant]
  54. CLONAZEPAM [Concomitant]
  55. PREVACID [Concomitant]
  56. CHLORHEXIDINE GLUCONATE [Concomitant]
  57. WELLBUTRIN [Concomitant]
  58. ZOMETA [Suspect]
     Dosage: UNK
     Dates: end: 20040401
  59. BACTRIM [Concomitant]
  60. ATIVAN [Concomitant]
  61. DOXORUBICIN HCL [Concomitant]
  62. KYTRIL [Concomitant]
  63. LEVAQUIN [Concomitant]
  64. FERROUS SULFATE TAB [Concomitant]
  65. REGLAN [Concomitant]
     Dosage: 10 MG, PRN
  66. EPHEDRIN [Concomitant]
     Dosage: 10 MG
     Route: 042
  67. PRILOSEC [Concomitant]
  68. CIPROFLOXACIN HCL [Concomitant]
     Dosage: 500 MG, BID
     Route: 048
  69. AXID [Concomitant]
     Dosage: 150 MG, BID
     Route: 048

REACTIONS (53)
  - FEBRILE NEUTROPENIA [None]
  - PHLEBITIS [None]
  - RESTLESS LEGS SYNDROME [None]
  - EMOTIONAL DISTRESS [None]
  - ABDOMINAL DISTENSION [None]
  - PROSTATOMEGALY [None]
  - SCIATICA [None]
  - SEPSIS [None]
  - CONTUSION [None]
  - PAIN [None]
  - MUCOSAL INFLAMMATION [None]
  - LEUKOPENIA [None]
  - BACILLUS TEST POSITIVE [None]
  - PNEUMONIA [None]
  - DEFORMITY [None]
  - INJURY [None]
  - PRIMARY SEQUESTRUM [None]
  - BONE DISORDER [None]
  - OSTEONECROSIS [None]
  - ABDOMINAL PAIN [None]
  - FATIGUE [None]
  - WEIGHT DECREASED [None]
  - HYPERCHOLESTEROLAEMIA [None]
  - GASTROOESOPHAGEAL REFLUX DISEASE [None]
  - FAECALOMA [None]
  - SPINAL CORD COMPRESSION [None]
  - WEIGHT INCREASED [None]
  - INFECTION [None]
  - ANXIETY [None]
  - NEPHROLITHIASIS [None]
  - BACTERAEMIA [None]
  - DYSPNOEA [None]
  - DIVERTICULUM [None]
  - FALL [None]
  - PLANTAR FASCIITIS [None]
  - OSTEONECROSIS OF JAW [None]
  - DEEP VEIN THROMBOSIS [None]
  - OSTEOMYELITIS [None]
  - PYOGENIC GRANULOMA [None]
  - HYPERLIPIDAEMIA [None]
  - PROCTALGIA [None]
  - PLASMACYTOMA [None]
  - PAIN IN EXTREMITY [None]
  - CLOSTRIDIUM DIFFICILE COLITIS [None]
  - OSTEOARTHRITIS [None]
  - RIB FRACTURE [None]
  - ANAEMIA [None]
  - VIRAL UPPER RESPIRATORY TRACT INFECTION [None]
  - NEUROPATHY PERIPHERAL [None]
  - JOINT EFFUSION [None]
  - DEPRESSION [None]
  - MUSCULAR WEAKNESS [None]
  - INTERVERTEBRAL DISC DEGENERATION [None]
